FAERS Safety Report 17997370 (Version 1)
Quarter: 2020Q3

REPORT INFORMATION
  Report Type: Report from Study
  Country: None (occurrence: US)
  Receive Date: 20200709
  Receipt Date: 20200709
  Transmission Date: 20201103
  Serious: Yes (Other)
  Sender: FDA-Public Use
  Company Number: US-ABBVIE-20K-163-3472289-00

PATIENT
  Age: 55 Year
  Sex: Male

DRUGS (2)
  1. HUMIRA [Suspect]
     Active Substance: ADALIMUMAB
     Indication: PSORIATIC ARTHROPATHY
  2. HUMIRA [Suspect]
     Active Substance: ADALIMUMAB
     Indication: PSORIASIS
     Dosage: CITRATE FREE
     Route: 058
     Dates: start: 20170517

REACTIONS (5)
  - Abscess [Recovering/Resolving]
  - Pain [Unknown]
  - Condition aggravated [Unknown]
  - Spinal pain [Not Recovered/Not Resolved]
  - Cyst [Recovering/Resolving]

NARRATIVE: CASE EVENT DATE: 202004
